FAERS Safety Report 10233430 (Version 1)
Quarter: 2014Q2

REPORT INFORMATION
  Report Type: Spontaneous
  Country: US (occurrence: None)
  Receive Date: 20140611
  Receipt Date: 20140611
  Transmission Date: 20141212
  Serious: Yes (Other)
  Sender: FDA-Public Use
  Company Number: None

PATIENT
  Age: 68 Year
  Sex: Female
  Weight: 62.14 kg

DRUGS (6)
  1. AMPYRA 10 MG ACORDA [Suspect]
     Indication: MULTIPLE SCLEROSIS
     Route: 048
     Dates: start: 20110531, end: 20131023
  2. CAPAXONE [Concomitant]
  3. ALENDRONATE [Concomitant]
  4. ZESTORETIC [Concomitant]
  5. AMITRIPTYLINE [Concomitant]
  6. BACLOFEN [Concomitant]

REACTIONS (2)
  - Renal failure acute [None]
  - Hypercalcaemia [None]
